FAERS Safety Report 4872527-X (Version None)
Quarter: 2005Q4

REPORT INFORMATION
  Report Type: 
  Country: None (occurrence: None)
  Receive Date: 20051230
  Receipt Date: 20051230
  Transmission Date: 20060501
  Serious: Yes (Life-Threatening, Hospitalization)
  Sender: FDA-Public Use
  Company Number: None

PATIENT
  Age: 59 Year
  Sex: Female
  Weight: 75.2 kg

DRUGS (1)
  1. VASOTEC [Suspect]
     Indication: HYPERTENSION
     Dosage: DAILY PO
     Route: 048
     Dates: start: 20050601, end: 20051020

REACTIONS (13)
  - ANGIONEUROTIC OEDEMA [None]
  - APHASIA [None]
  - CEREBROVASCULAR ACCIDENT [None]
  - DIFFICULT TO WEAN FROM VENTILATOR [None]
  - DYSPHAGIA [None]
  - EYE SWELLING [None]
  - HEMIPARESIS [None]
  - HYPOXIA [None]
  - LOSS OF CONSCIOUSNESS [None]
  - LUNG DISORDER [None]
  - SWELLING [None]
  - SWELLING FACE [None]
  - TREATMENT NONCOMPLIANCE [None]
